FAERS Safety Report 6248141-0 (Version None)
Quarter: 2009Q2

REPORT INFORMATION
  Report Type: 
  Country: None (occurrence: None)
  Receive Date: 20090624
  Receipt Date: 20090624
  Transmission Date: 20091009
  Serious: Yes (Other)
  Sender: FDA-Public Use
  Company Number: None

PATIENT
  Sex: Male
  Weight: 77.1115 kg

DRUGS (1)
  1. FLOMAX [Suspect]
     Dosage: 2 TAB @ BEDTIME ONCE
     Dates: start: 20090601

REACTIONS (2)
  - DIZZINESS [None]
  - NASAL CONGESTION [None]
